FAERS Safety Report 17908022 (Version 1)
Quarter: 2020Q2

REPORT INFORMATION
  Report Type: Spontaneous
  Country: US (occurrence: US)
  Receive Date: 20200617
  Receipt Date: 20200617
  Transmission Date: 20200714
  Serious: Yes (Hospitalization, Disabling, Other)
  Sender: FDA-Public Use
  Company Number: US-SA-2020SA153152

PATIENT

DRUGS (1)
  1. ZANTAC 75 [Suspect]
     Active Substance: RANITIDINE HYDROCHLORIDE
     Indication: DYSPEPSIA
     Dosage: UNK
     Dates: start: 1995, end: 2019

REACTIONS (7)
  - Injury [Unknown]
  - Physical disability [Unknown]
  - Emotional distress [Unknown]
  - Pain [Unknown]
  - Thyroid cancer [Unknown]
  - Economic problem [Unknown]
  - Anxiety [Unknown]
